FAERS Safety Report 17037731 (Version 8)
Quarter: 2020Q3

REPORT INFORMATION
  Report Type: Report from Study
  Country: CO (occurrence: CO)
  Receive Date: 20191115
  Receipt Date: 20200821
  Transmission Date: 20201102
  Serious: Yes (Hospitalization, Other)
  Sender: FDA-Public Use
  Company Number: CO-ASTELLAS-2019US045656

PATIENT
  Age: 52 Year
  Sex: Male

DRUGS (7)
  1. PROGRAF [Suspect]
     Active Substance: TACROLIMUS
     Indication: HEART TRANSPLANT
     Dosage: 5 MG, EVERY 12 HOURS (2 CAPSULES OF 5 MG)
     Route: 048
     Dates: start: 20200615, end: 202006
  2. TACROLIMUS. [Suspect]
     Active Substance: TACROLIMUS
     Dosage: 10 MG, ONCE DAILY (TWO 5MG CAPSULES)
     Route: 048
     Dates: start: 20200623
  3. TACROLIMUS. [Suspect]
     Active Substance: TACROLIMUS
     Route: 048
     Dates: start: 201808
  4. TACROLIMUS. [Suspect]
     Active Substance: TACROLIMUS
     Dosage: 6 MG, ONCE DAILY (1 CAPSULE OF 5MG AND 1 CAPSULE 1 MG)
     Route: 048
     Dates: start: 201809, end: 20200614
  5. MYCOPHENOLATE [Concomitant]
     Active Substance: MYCOPHENOLIC ACID
     Indication: HEART TRANSPLANT
     Route: 048
     Dates: start: 20180517
  6. TACROLIMUS. [Suspect]
     Active Substance: TACROLIMUS
     Indication: HEART TRANSPLANT
     Dosage: 10 MG, ONCE DAILY (10 CAPSULES OF 1 MG)
     Route: 048
     Dates: start: 20180517
  7. PROGRAF [Suspect]
     Active Substance: TACROLIMUS
     Dosage: 5 MG, EVERY 12 HOURS (2 CAPSULES OF 5 MG)
     Route: 048
     Dates: start: 202007

REACTIONS (9)
  - Insomnia [Not Recovered/Not Resolved]
  - Dyspnoea [Recovering/Resolving]
  - Heart transplant rejection [Unknown]
  - Fluid retention [Not Recovered/Not Resolved]
  - Product use in unapproved indication [Unknown]
  - Product prescribing error [Unknown]
  - Asphyxia [Not Recovered/Not Resolved]
  - Oedema [Unknown]
  - Product dispensing error [Unknown]

NARRATIVE: CASE EVENT DATE: 20180517
